FAERS Safety Report 12493834 (Version 1)
Quarter: 2016Q2

REPORT INFORMATION
  Report Type: Report from Study
  Country: US (occurrence: US)
  Receive Date: 20160623
  Receipt Date: 20160623
  Transmission Date: 20160815
  Serious: Yes (Hospitalization, Other)
  Sender: FDA-Public Use
  Company Number: US-TAKEDA-2016TUS010534

PATIENT
  Age: 49 Year
  Sex: Female

DRUGS (2)
  1. PIOGLITAZONE. [Suspect]
     Active Substance: PIOGLITAZONE
     Indication: PRODUCT USED FOR UNKNOWN INDICATION
     Route: 065
  2. METFORMIN [Suspect]
     Active Substance: METFORMIN HYDROCHLORIDE
     Indication: PRODUCT USED FOR UNKNOWN INDICATION
     Dosage: UNK
     Route: 065

REACTIONS (12)
  - Wound [Unknown]
  - Malaise [Unknown]
  - Dizziness [Unknown]
  - Weight decreased [Unknown]
  - Blood glucose abnormal [Unknown]
  - Abdominal discomfort [Unknown]
  - Oedema peripheral [Unknown]
  - Pneumothorax [Unknown]
  - Protein urine [Unknown]
  - Vision blurred [Unknown]
  - Cardiac failure congestive [Unknown]
  - Bedridden [Unknown]
